FAERS Safety Report 19737039 (Version 1)
Quarter: 2021Q3

REPORT INFORMATION
  Report Type: Spontaneous
  Country: FR (occurrence: FR)
  Receive Date: 20210824
  Receipt Date: 20210824
  Transmission Date: 20211014
  Serious: Yes (Hospitalization)
  Sender: FDA-Public Use
  Company Number: FR-ROCHE-2896016

PATIENT
  Age: 25 Year
  Sex: Female

DRUGS (1)
  1. XOLAIR [Suspect]
     Active Substance: OMALIZUMAB
     Indication: ASTHMA
     Dosage: 450 MG, 14D
     Route: 058
     Dates: start: 201712

REACTIONS (1)
  - Granulomatosis with polyangiitis [Recovered/Resolved with Sequelae]

NARRATIVE: CASE EVENT DATE: 201712
